FAERS Safety Report 12176663 (Version 3)
Quarter: 2016Q1

REPORT INFORMATION
  Report Type: Other
  Country: DE (occurrence: DE)
  Receive Date: 20160315
  Receipt Date: 20160317
  Transmission Date: 20160526
  Serious: Yes (Hospitalization, Other)
  Sender: FDA-Public Use
  Company Number: DE-LUPIN PHARMACEUTICALS INC.-E2B_00003829

PATIENT
  Age: 1 Day
  Sex: Female
  Weight: 3.6 kg

DRUGS (5)
  1. PREDNISONE. [Concomitant]
     Active Substance: PREDNISONE
     Indication: PROPHYLAXIS OF ABORTION
     Route: 064
  2. FOLSAURE [Concomitant]
     Active Substance: FOLIC ACID
     Indication: PROPHYLAXIS OF NEURAL TUBE DEFECT
     Route: 064
     Dates: start: 20140418, end: 20141210
  3. SERTRALINE [Suspect]
     Active Substance: SERTRALINE HYDROCHLORIDE
     Indication: DEPRESSION
     Dosage: 100 [MG/DAY]/ MAYBE REDUCTION TO 50 MG/DAY IN GESTATIONAL WEEK 33+6
     Route: 064
     Dates: start: 20140418, end: 20150113
  4. UTROGEST [Concomitant]
     Active Substance: PROGESTERONE
     Indication: PROPHYLAXIS OF ABORTION
     Route: 064
  5. L-THYROX [Concomitant]
     Active Substance: LEVOTHYROXINE SODIUM
     Indication: HYPOTHYROIDISM
     Dosage: 150 [MICROG/DAY]/ DOSAGE BETWEEN 150 MICROG/DAY AND 75 MICROG/DAY
     Route: 064
     Dates: start: 20140418, end: 20150113

REACTIONS (3)
  - Respiratory disorder neonatal [Recovered/Resolved]
  - Infantile apnoea [Recovered/Resolved]
  - Foetal exposure during pregnancy [Unknown]

NARRATIVE: CASE EVENT DATE: 20140418
